FAERS Safety Report 7999552-4 (Version None)
Quarter: 2011Q4

REPORT INFORMATION
  Report Type: 
  Country: None (occurrence: None)
  Receive Date: 20111221
  Receipt Date: 20111214
  Transmission Date: 20120403
  Serious: Yes (Hospitalization)
  Sender: FDA-Public Use
  Company Number: CH-ABBOTT-11P-151-0883561-00

PATIENT
  Age: 78 Year
  Sex: Male

DRUGS (6)
  1. MARCUMAR [Interacting]
     Indication: ATRIAL FIBRILLATION
  2. CLARITHROMYCIN [Suspect]
     Indication: HELICOBACTER GASTRITIS
     Route: 048
     Dates: start: 20090804, end: 20090914
  3. TENORMIN [Concomitant]
     Indication: PRODUCT USED FOR UNKNOWN INDICATION
     Dates: end: 20090801
  4. PANTOPRAZOLE SODIUM [Concomitant]
     Indication: HELICOBACTER GASTRITIS
     Dates: start: 20090804
  5. MARCUMAR [Interacting]
     Indication: ATRIAL FLUTTER
     Route: 048
     Dates: start: 20090101, end: 20090725
  6. AMOXICILLIN AND CLAVULANATE POTASSIUM [Concomitant]
     Indication: HELICOBACTER GASTRITIS
     Route: 048
     Dates: start: 20090804, end: 20090914

REACTIONS (3)
  - LABELLED DRUG-DRUG INTERACTION MEDICATION ERROR [None]
  - DYSPNOEA [None]
  - MELAENA [None]
